FAERS Safety Report 5294855-9 (Version None)
Quarter: 2007Q2

REPORT INFORMATION
  Report Type: 
  Country: None (occurrence: None)
  Receive Date: 20070412
  Receipt Date: 20070411
  Transmission Date: 20071010
  Serious: Yes (Other)
  Sender: FDA-Public Use
  Company Number: JP-BRISTOL-MYERS SQUIBB COMPANY-13744008

PATIENT
  Age: 33 Year
  Sex: Female

DRUGS (3)
  1. CISPLATIN [Suspect]
     Indication: OVARIAN NEOPLASM
     Route: 042
  2. BLEOMYCIN [Suspect]
     Indication: OVARIAN NEOPLASM
     Route: 030
  3. VINBLASTINE SULFATE [Suspect]
     Indication: OVARIAN NEOPLASM
     Route: 042

REACTIONS (8)
  - CAESAREAN SECTION [None]
  - DRUG EXPOSURE DURING PREGNANCY [None]
  - FOETAL GROWTH RETARDATION [None]
  - HEPATIC NEOPLASM [None]
  - NORMAL NEWBORN [None]
  - OLIGOHYDRAMNIOS [None]
  - PERITONEAL NEOPLASM [None]
  - PREGNANCY INDUCED HYPERTENSION [None]
